FAERS Safety Report 8024555-3 (Version None)
Quarter: 2011Q4

REPORT INFORMATION
  Report Type: 
  Country: None (occurrence: None)
  Receive Date: 20111130
  Receipt Date: 20110415
  Transmission Date: 20120403
  Serious: Yes (Hospitalization)
  Sender: FDA-Public Use
  Company Number: 326758

PATIENT
  Age: 60 Year
  Sex: Female
  Weight: 74.8 kg

DRUGS (2)
  1. NOVOLOG [Suspect]
     Indication: TYPE 2 DIABETES MELLITUS
     Dosage: SUBCUTANEOUS
     Route: 058
  2. LANTUS [Concomitant]

REACTIONS (2)
  - BLOOD GLUCOSE INCREASED [None]
  - CATARACT [None]
